FAERS Safety Report 5926755-2 (Version None)
Quarter: 2008Q4

REPORT INFORMATION
  Report Type: 
  Country: None (occurrence: None)
  Receive Date: 20081017
  Receipt Date: 20081006
  Transmission Date: 20090506
  Serious: Yes (Death, Hospitalization)
  Sender: FDA-Public Use
  Company Number: FR-2008-0764

PATIENT
  Age: 61 Year
  Sex: Male

DRUGS (2)
  1. NAVELBINE [Suspect]
     Indication: NON-SMALL CELL LUNG CANCER STAGE IV
     Dates: start: 20080227, end: 20080317
  2. CISPLATIN [Suspect]
     Indication: NON-SMALL CELL LUNG CANCER STAGE IV
     Dates: start: 20080227, end: 20080227

REACTIONS (6)
  - AGRANULOCYTOSIS [None]
  - ANAEMIA [None]
  - LEUKOPENIA [None]
  - LUNG DISORDER [None]
  - PYREXIA [None]
  - RESPIRATORY FAILURE [None]
